FAERS Safety Report 6729990-9 (Version None)
Quarter: 2010Q2

REPORT INFORMATION
  Report Type: 
  Country: None (occurrence: None)
  Receive Date: 20100518
  Receipt Date: 20100505
  Transmission Date: 20101027
  Serious: Yes (Other)
  Sender: FDA-Public Use
  Company Number: US-SANOFI-AVENTIS-A03200604261

PATIENT
  Age: 35 Year
  Sex: Male
  Weight: 92.98 kg

DRUGS (4)
  1. AMBIEN CR [Suspect]
     Indication: SLEEP DISORDER
     Route: 048
     Dates: start: 20060630, end: 20060630
  2. AMBIEN CR [Suspect]
     Dosage: UNIT DOSE: 1 DF
     Route: 048
  3. CITALOPRAM [Concomitant]
  4. DIPHENHYDRAMINE [Concomitant]

REACTIONS (11)
  - AMNESIA [None]
  - BRADYPHRENIA [None]
  - CONFUSIONAL STATE [None]
  - DRUG INEFFECTIVE [None]
  - HALLUCINATION, VISUAL [None]
  - IMPAIRED DRIVING ABILITY [None]
  - INSOMNIA [None]
  - INTENTIONAL OVERDOSE [None]
  - NYSTAGMUS [None]
  - ROAD TRAFFIC ACCIDENT [None]
  - SOMNOLENCE [None]
